FAERS Safety Report 23894909 (Version 2)
Quarter: 2024Q3

REPORT INFORMATION
  Report Type: Spontaneous
  Country: US (occurrence: US)
  Receive Date: 20240524
  Receipt Date: 20240708
  Transmission Date: 20241017
  Serious: Yes (Death)
  Sender: AUROBINDO
  Company Number: US-AUROBINDO-AUR-APL-2024-024667

PATIENT
  Age: 29 Year
  Sex: Female

DRUGS (7)
  1. ACYCLOVIR [Suspect]
     Active Substance: ACYCLOVIR
     Indication: Meningitis
     Dosage: UNK (OVER 14 DAYS )
     Route: 065
  2. AMPHOTERICIN B [Suspect]
     Active Substance: AMPHOTERICIN B
     Indication: Meningitis fungal
     Dosage: UNK (ON DAY 15 OF HER HOSPITALIZATION)
     Route: 042
  3. NICARDIPINE [Suspect]
     Active Substance: NICARDIPINE
     Indication: Cerebral vasoconstriction
     Dosage: UNK
     Route: 013
  4. VANCOMYCIN [Suspect]
     Active Substance: VANCOMYCIN
     Indication: Meningitis
     Dosage: UNK (OVER 14 DAYS)
     Route: 065
  5. VORICONAZOLE [Suspect]
     Active Substance: VORICONAZOLE
     Indication: Meningitis fungal
     Dosage: UNK (ON DAY 15 OF HER HOSPITALIZATION)
     Route: 042
  6. VERAPAMIL HYDROCHLORIDE [Suspect]
     Active Substance: VERAPAMIL HYDROCHLORIDE
     Indication: Cerebral vasoconstriction
     Dosage: UNK
     Route: 013
  7. CEFTRIAXONE [Suspect]
     Active Substance: CEFTRIAXONE\CEFTRIAXONE SODIUM
     Indication: Meningitis
     Dosage: UNK (OVER 14 DAYS)
     Route: 042

REACTIONS (1)
  - Drug ineffective [Fatal]
